FAERS Safety Report 4949306-8 (Version None)
Quarter: 2006Q1

REPORT INFORMATION
  Report Type: 
  Country: None (occurrence: None)
  Receive Date: 20060315
  Receipt Date: 20060307
  Transmission Date: 20060701
  Serious: Yes (Hospitalization)
  Sender: FDA-Public Use
  Company Number: 2006BI001511

PATIENT
  Age: 64 Year
  Sex: Male
  Weight: 87.0906 kg

DRUGS (14)
  1. AVONEX [Suspect]
     Indication: MULTIPLE SCLEROSIS
     Dosage: QW;IM
     Route: 030
     Dates: start: 20030601, end: 20060122
  2. ALBUTEROL [Concomitant]
  3. ADVAIR INHALER [Concomitant]
  4. VIAGRA [Concomitant]
  5. DITROPAN [Concomitant]
  6. LIPITOR [Concomitant]
  7. PREVACID [Concomitant]
  8. ALLEGRA [Concomitant]
  9. FLOVENT [Concomitant]
  10. SEREVENT [Concomitant]
  11. LEVITRA [Concomitant]
  12. PROVIGIL [Concomitant]
  13. TERAZOSIN [Concomitant]
  14. VANCERIL [Concomitant]

REACTIONS (13)
  - COORDINATION ABNORMAL [None]
  - COUGH [None]
  - DEPRESSION [None]
  - DIFFICULTY IN WALKING [None]
  - ERECTILE DYSFUNCTION [None]
  - HALLUCINATION [None]
  - HEART RATE INCREASED [None]
  - OVERDOSE [None]
  - POLLAKIURIA [None]
  - PYREXIA [None]
  - STRESS [None]
  - SUICIDE ATTEMPT [None]
  - VISUAL ACUITY REDUCED [None]
